FAERS Safety Report 5480069-6 (Version None)
Quarter: 2007Q4

REPORT INFORMATION
  Report Type: 
  Country: None (occurrence: None)
  Receive Date: 20071008
  Receipt Date: 20070926
  Transmission Date: 20080405
  Serious: Yes (Other)
  Sender: FDA-Public Use
  Company Number: US-PFIZER INC-2007081281

PATIENT
  Sex: Female
  Weight: 61.363 kg

DRUGS (4)
  1. LYRICA [Suspect]
     Indication: PREMEDICATION
     Dates: start: 20070926, end: 20070926
  2. METHADONE HCL [Concomitant]
  3. ACTIQ [Concomitant]
  4. FENTANYL CITRATE [Concomitant]

REACTIONS (5)
  - ANGIOEDEMA [None]
  - OXYGEN SATURATION DECREASED [None]
  - STRIDOR [None]
  - THROAT TIGHTNESS [None]
  - URTICARIA [None]
